FAERS Safety Report 13161874 (Version 1)
Quarter: 2017Q1

REPORT INFORMATION
  Report Type: Spontaneous
  Country: DE (occurrence: DE)
  Receive Date: 20170130
  Receipt Date: 20170130
  Transmission Date: 20170428
  Serious: Yes (Other)
  Sender: FDA-Public Use
  Company Number: PHHY2017DE012397

PATIENT

DRUGS (8)
  1. DULOXETINE. [Interacting]
     Active Substance: DULOXETINE
     Indication: NICOTINE DEPENDENCE
  2. DULOXETINE. [Interacting]
     Active Substance: DULOXETINE
     Indication: PAIN
     Route: 065
  3. DULOXETINE. [Interacting]
     Active Substance: DULOXETINE
     Indication: AFFECTIVE DISORDER
  4. DOXEPIN [Interacting]
     Active Substance: DOXEPIN
     Indication: NICOTINE DEPENDENCE
  5. DOXEPIN [Interacting]
     Active Substance: DOXEPIN
     Indication: AFFECTIVE DISORDER
  6. DOXEPIN [Suspect]
     Active Substance: DOXEPIN
     Indication: PAIN
     Route: 065
  7. DULOXETINE. [Interacting]
     Active Substance: DULOXETINE
     Indication: DRUG DEPENDENCE
  8. DOXEPIN [Interacting]
     Active Substance: DOXEPIN
     Indication: DRUG DEPENDENCE

REACTIONS (1)
  - Drug interaction [Unknown]
